FAERS Safety Report 6727875-5 (Version None)
Quarter: 2010Q2

REPORT INFORMATION
  Report Type: 
  Country: None (occurrence: None)
  Receive Date: 20100517
  Receipt Date: 20100505
  Transmission Date: 20101027
  Serious: Yes (Other)
  Sender: FDA-Public Use
  Company Number: DE-JNJFOC-20091100805

PATIENT
  Age: 27 Year
  Sex: Female
  Weight: 84 kg

DRUGS (5)
  1. REMICADE [Suspect]
     Indication: COLITIS ULCERATIVE
     Route: 042
  2. REMICADE [Suspect]
     Route: 042
  3. AZATHIOPRINE [Concomitant]
  4. TILIDIN [Concomitant]
  5. FLUOXETINE [Concomitant]

REACTIONS (5)
  - CAESAREAN SECTION [None]
  - CLOSTRIDIUM TEST POSITIVE [None]
  - COLITIS ULCERATIVE [None]
  - DRUG EXPOSURE DURING PREGNANCY [None]
  - PSEUDOMEMBRANOUS COLITIS [None]
